FAERS Safety Report 21936052 (Version 1)
Quarter: 2023Q1

REPORT INFORMATION
  Report Type: Spontaneous
  Country: US (occurrence: None)
  Receive Date: 20230131
  Receipt Date: 20230131
  Transmission Date: 20230417
  Serious: No
  Sender: FDA-Public Use
  Company Number: None

PATIENT
  Age: 58 Year
  Sex: Female

DRUGS (1)
  1. CAPECITABINE [Suspect]
     Active Substance: CAPECITABINE
     Dosage: FREQUENCY : TWICE A DAY;?
     Route: 048
     Dates: start: 202211

REACTIONS (6)
  - Arthralgia [None]
  - Pain in extremity [None]
  - Pain in extremity [None]
  - Blood potassium decreased [None]
  - Dehydration [None]
  - Immunodeficiency [None]

NARRATIVE: CASE EVENT DATE: 20221215
